FAERS Safety Report 24994610 (Version 1)
Quarter: 2025Q1

REPORT INFORMATION
  Report Type: Spontaneous
  Country: US (occurrence: US)
  Receive Date: 20250221
  Receipt Date: 20250221
  Transmission Date: 20250409
  Serious: No
  Sender: JOHNSON AND JOHNSON
  Company Number: US-JNJFOC-20250221499

PATIENT
  Age: 55 Year
  Sex: Male

DRUGS (1)
  1. TREMFYA [Suspect]
     Active Substance: GUSELKUMAB
     Indication: Colitis ulcerative
     Route: 058
     Dates: start: 20250108, end: 20250108

REACTIONS (7)
  - Cough [Unknown]
  - Chills [Unknown]
  - Chest discomfort [Unknown]
  - Night sweats [Unknown]
  - Dizziness [Unknown]
  - Myalgia [Unknown]
  - Rash [Unknown]

NARRATIVE: CASE EVENT DATE: 20250101
